FAERS Safety Report 8029785-2 (Version None)
Quarter: 2012Q1

REPORT INFORMATION
  Report Type: 
  Country: None (occurrence: None)
  Receive Date: 20120104
  Receipt Date: 20111222
  Transmission Date: 20120608
  Serious: No
  Sender: FDA-Public Use
  Company Number: 1000024743

PATIENT
  Age: 40 Year
  Sex: Male
  Weight: 75 kg

DRUGS (2)
  1. ESCITALOPRAM OXALATE [Suspect]
     Indication: DEPRESSION
     Dosage: 10 MG (10 MG,1 IN 1 D),ORAL
     Route: 048
     Dates: start: 20110518, end: 20110922
  2. ESCITALOPRAM OXALATE [Suspect]
     Indication: DEPRESSION
     Dosage: 5 MG (5 MG,1 IN 1 D),ORAL
     Route: 048
     Dates: start: 20111014

REACTIONS (6)
  - CONFUSIONAL STATE [None]
  - WITHDRAWAL SYNDROME [None]
  - DISTURBANCE IN ATTENTION [None]
  - PARAESTHESIA [None]
  - NAUSEA [None]
  - DIZZINESS [None]
